FAERS Safety Report 9182235 (Version 1)
Quarter: 2012Q4

REPORT INFORMATION
  Report Type: 
  Country: US (occurrence: US)
  Receive Date: 20121030
  Receipt Date: 20121030
  Transmission Date: 20130627
  Serious: No
  Sender: FDA-Public Use
  Company Number: US-GLAXOSMITHKLINE-A0973028A

PATIENT
  Age: 82 Year
  Sex: Male

DRUGS (11)
  1. SEREVENT [Suspect]
     Indication: CHRONIC OBSTRUCTIVE PULMONARY DISEASE
     Dosage: 1PUFF Twice per day
     Route: 055
     Dates: start: 2002
  2. OMEPRAZOLE [Concomitant]
  3. PLAVIX [Concomitant]
  4. ALPRAZOLAM [Concomitant]
  5. BABY ASPIRIN [Concomitant]
  6. AVODART [Concomitant]
  7. ZETIA [Concomitant]
  8. METOPROLOL [Concomitant]
  9. BUSPIRONE [Concomitant]
  10. CITALOPRAM [Concomitant]
  11. COMBIVENT [Concomitant]

REACTIONS (2)
  - Drug ineffective [Not Recovered/Not Resolved]
  - Product quality issue [Unknown]
